FAERS Safety Report 4464631-5 (Version None)
Quarter: 2004Q3

REPORT INFORMATION
  Report Type: 
  Country: None (occurrence: None)
  Receive Date: 20040928
  Receipt Date: 20040910
  Transmission Date: 20050211
  Serious: Yes (Other)
  Sender: FDA-Public Use
  Company Number: B0329720A

PATIENT
  Age: 37 Year
  Sex: Female
  Weight: 70.3529 kg

DRUGS (3)
  1. LAMIVUDINE  (FORMULATION UNKNOWN) (LAMIVUDINE) [Suspect]
     Indication: HIV INFECTION
     Dosage: 300 MG/ PER DAY/
     Dates: start: 20031201
  2. KALETRA [Concomitant]
  3. DIDANOSINE [Concomitant]

REACTIONS (1)
  - ANOSMIA [None]
